FAERS Safety Report 7577119-X (Version None)
Quarter: 2011Q2

REPORT INFORMATION
  Report Type: 
  Country: None (occurrence: None)
  Receive Date: 20110628
  Receipt Date: 20110609
  Transmission Date: 20111010
  Serious: Yes (Hospitalization, Other)
  Sender: FDA-Public Use
  Company Number: US-BAYER-2011-050205

PATIENT
  Age: 71 Year
  Sex: Male

DRUGS (1)
  1. AVELOX [Suspect]
     Indication: LARYNGITIS
     Dosage: 400 MG, QD
     Route: 048
     Dates: start: 20110602, end: 20110601

REACTIONS (6)
  - SWOLLEN TONGUE [None]
  - COUGH [None]
  - LIP SWELLING [None]
  - ANAPHYLACTIC REACTION [None]
  - DYSPNOEA [None]
  - PRURITUS [None]
